FAERS Safety Report 5164393-2 (Version None)
Quarter: 2006Q4

REPORT INFORMATION
  Report Type: 
  Country: None (occurrence: None)
  Receive Date: 20061205
  Receipt Date: 20061018
  Transmission Date: 20070319
  Serious: Yes (Hospitalization)
  Sender: FDA-Public Use
  Company Number: US-AMGEN-US197310

PATIENT
  Age: 65 Year
  Sex: Female
  Weight: 51.8 kg

DRUGS (16)
  1. ETANERCEPT - BLINDED [Suspect]
     Indication: RHEUMATOID ARTHRITIS
     Dates: start: 20051004
  2. METHOTREXATE [Suspect]
  3. HYDROXYCHLOROQUINE SULFATE [Suspect]
  4. SULFASALAZINE [Suspect]
  5. NAPROXEN [Concomitant]
  6. PREDNISONE TAB [Concomitant]
  7. RAMIPRIL [Concomitant]
  8. CLONAZEPAM [Concomitant]
  9. AMITRIPTYLINE HCL [Concomitant]
  10. ALBUTEROL [Concomitant]
  11. ATROPINE W/DIPHENOXYLATE [Concomitant]
  12. FLUTICASONE/SALMETEROL [Concomitant]
  13. RISEDRONATE SODIUM [Concomitant]
  14. FOLIC ACID [Concomitant]
  15. ATORVASTATIN CALCIUM [Concomitant]
  16. METFORMIN [Concomitant]

REACTIONS (9)
  - BLOOD AMYLASE INCREASED [None]
  - COLITIS ISCHAEMIC [None]
  - CONVULSION [None]
  - ELECTROENCEPHALOGRAM ABNORMAL [None]
  - HYPOTENSION [None]
  - INTERSTITIAL LUNG DISEASE [None]
  - LIPASE INCREASED [None]
  - LOSS OF CONSCIOUSNESS [None]
  - PULMONARY OEDEMA [None]
